FAERS Safety Report 5099596-9 (Version None)
Quarter: 2006Q3

REPORT INFORMATION
  Report Type: 
  Country: None (occurrence: None)
  Receive Date: 20060908
  Receipt Date: 20001011
  Transmission Date: 20061208
  Serious: Yes (Other)
  Sender: FDA-Public Use
  Company Number: FR-BAYER-200000513BFR

PATIENT
  Age: 35 Year
  Sex: Male
  Weight: 72 kg

DRUGS (1)
  1. VARDENAFIL [Suspect]
     Indication: ERECTILE DYSFUNCTION
     Dosage: UNIT DOSE: 5 MG
     Route: 048
     Dates: start: 20000705, end: 20000916

REACTIONS (2)
  - ABDOMINAL PAIN UPPER [None]
  - RETINAL DETACHMENT [None]
